FAERS Safety Report 7253883-4 (Version None)
Quarter: 2011Q1

REPORT INFORMATION
  Report Type: 
  Country: None (occurrence: None)
  Receive Date: 20110129
  Receipt Date: 20100427
  Transmission Date: 20110831
  Serious: No
  Sender: FDA-Public Use
  Company Number: US-ABBOTT-10P-163-0641016-00

PATIENT
  Sex: Female

DRUGS (3)
  1. HUMIRA [Suspect]
     Indication: PSORIASIS
  2. HUMIRA [Suspect]
     Indication: PSORIATIC ARTHROPATHY
     Dates: start: 20100129
  3. UNKNOWN MEDICATION [Suspect]
     Indication: SLEEP DISORDER THERAPY

REACTIONS (3)
  - ABDOMINAL DISCOMFORT [None]
  - HYPOPHAGIA [None]
  - NAUSEA [None]
